FAERS Safety Report 5299255-3 (Version None)
Quarter: 2007Q2

REPORT INFORMATION
  Report Type: 
  Country: None (occurrence: None)
  Receive Date: 20070417
  Receipt Date: 20070403
  Transmission Date: 20071010
  Serious: Yes (Other)
  Sender: FDA-Public Use
  Company Number: JP-ROCHE-485396

PATIENT
  Age: 66 Year
  Sex: Female
  Weight: 51 kg

DRUGS (5)
  1. TAMIFLU [Suspect]
     Route: 048
     Dates: start: 20070226, end: 20070226
  2. TAMIFLU [Suspect]
     Dosage: DOSE DECREASED.
     Route: 048
     Dates: start: 20070227, end: 20070227
  3. PL [Concomitant]
     Route: 048
     Dates: start: 20070226
  4. DL-METHYLEPHEDRINE [Concomitant]
     Route: 048
     Dates: start: 20070226
  5. MEDICON [Concomitant]
     Route: 048
     Dates: start: 20070226

REACTIONS (2)
  - ANOREXIA [None]
  - ENTEROCOLITIS HAEMORRHAGIC [None]
